FAERS Safety Report 16089809 (Version 6)
Quarter: 2020Q3

REPORT INFORMATION
  Report Type: Report from Study
  Country: JP (occurrence: JP)
  Receive Date: 20190319
  Receipt Date: 20200713
  Transmission Date: 20201102
  Serious: Yes (Hospitalization, Other)
  Sender: FDA-Public Use
  Company Number: JP-GLAXOSMITHKLINE-JP2018JPN144948

PATIENT
  Sex: Female
  Weight: 46 kg

DRUGS (42)
  1. PREDNISOLONE. [Suspect]
     Active Substance: PREDNISOLONE
     Dosage: 21 MG, 1D
     Route: 048
     Dates: start: 20181005, end: 20181007
  2. PREDNISOLONE. [Suspect]
     Active Substance: PREDNISOLONE
     Dosage: 24 MG, 1D
     Route: 048
     Dates: start: 20180330, end: 20180524
  3. ITRACONAZOLE. [Suspect]
     Active Substance: ITRACONAZOLE
     Indication: SYSTEMIC MYCOSIS
     Dosage: 100 MG, 1D
     Route: 065
     Dates: start: 20180731, end: 20180929
  4. LAMISIL [Suspect]
     Active Substance: TERBINAFINE HYDROCHLORIDE
     Indication: CHROMOBLASTOMYCOSIS
     Dosage: 250 MG, 1D
     Route: 065
     Dates: start: 20181002, end: 20181005
  5. FOLIAMIN TABLETS [Concomitant]
     Indication: PROPHYLAXIS
     Dosage: UNK
  6. BONALON [Concomitant]
     Active Substance: ALENDRONATE SODIUM
     Dosage: UNK
  7. PREDNISOLONE. [Suspect]
     Active Substance: PREDNISOLONE
     Dosage: 25 MG, 1D
     Route: 048
     Dates: start: 20180123, end: 20180201
  8. BELIMUMAB [Suspect]
     Active Substance: BELIMUMAB
     Indication: SYSTEMIC LUPUS ERYTHEMATOSUS
     Dosage: 10 MG/KG, EVERY 2 WEEKS
     Route: 041
     Dates: start: 20180119, end: 20180216
  9. PREDNISOLONE. [Suspect]
     Active Substance: PREDNISOLONE
     Dosage: 15 MG, 1D
     Route: 048
     Dates: start: 20181103, end: 20181113
  10. PREDNISOLONE. [Suspect]
     Active Substance: PREDNISOLONE
     Dosage: 17 MG, 1D
     Route: 048
     Dates: start: 20181020, end: 20181026
  11. PREDNISOLONE. [Suspect]
     Active Substance: PREDNISOLONE
     Dosage: 28 MG, 1D
     Route: 048
     Dates: start: 20180223, end: 20180315
  12. PREDNISOLONE. [Suspect]
     Active Substance: PREDNISOLONE
     Dosage: 30 MG, 1D
     Route: 048
     Dates: start: 20180202, end: 20180222
  13. FUNGUARD [Suspect]
     Active Substance: MICAFUNGIN SODIUM
     Dosage: 300 MG, 1D
     Route: 065
     Dates: start: 20181018, end: 20181106
  14. EDIROL CAPSULE [Concomitant]
     Dosage: UNK
  15. INFLUENZA HA VACCINE [Concomitant]
     Active Substance: INFLUENZA VIRUS VACCINE
     Indication: PROPHYLAXIS
     Dates: start: 20181116
  16. PREDNISOLONE. [Suspect]
     Active Substance: PREDNISOLONE
     Dosage: 14 MG, 1D
     Route: 048
     Dates: start: 20181114
  17. ITRACONAZOLE. [Suspect]
     Active Substance: ITRACONAZOLE
     Indication: CHROMOBLASTOMYCOSIS
     Dosage: 200 MG, 1D
     Route: 065
     Dates: start: 20180914, end: 20180927
  18. FUNGUARD [Suspect]
     Active Substance: MICAFUNGIN SODIUM
     Dosage: 250 MG, 1D
     Route: 065
     Dates: start: 20181015
  19. BELIMUMAB [Suspect]
     Active Substance: BELIMUMAB
     Dosage: 10 MG/KG, EVERY 4 WEEKS
     Route: 041
     Dates: start: 20180330, end: 20180817
  20. PREDNISOLONE. [Suspect]
     Active Substance: PREDNISOLONE
     Dosage: 19 MG, 1D
     Route: 048
     Dates: start: 20181011, end: 20181013
  21. PREDNISOLONE. [Suspect]
     Active Substance: PREDNISOLONE
     Dosage: 23 MG, 1D
     Route: 048
     Dates: start: 20180817, end: 20180930
  22. PREDNISOLONE. [Suspect]
     Active Substance: PREDNISOLONE
     Indication: SYSTEMIC LUPUS ERYTHEMATOSUS
     Dosage: 30 MG, 1D
     Route: 048
     Dates: start: 20180119, end: 20180122
  23. RHEUMATREX [Suspect]
     Active Substance: METHOTREXATE SODIUM
     Indication: SYSTEMIC LUPUS ERYTHEMATOSUS
     Dosage: UNK
     Route: 048
  24. AMBISOME [Suspect]
     Active Substance: AMPHOTERICIN B
     Indication: CHROMOBLASTOMYCOSIS
  25. TAKEPRON OD TABLETS [Concomitant]
     Indication: PROPHYLAXIS AGAINST GASTROINTESTINAL ULCER
     Dosage: UNK
  26. FERROMIA TABLETS [Concomitant]
     Dosage: UNK
  27. LOXONIN TABLETS [Concomitant]
     Active Substance: LOXOPROFEN SODIUM
     Indication: SYSTEMIC LUPUS ERYTHEMATOSUS
     Dosage: UNK
  28. PREDNISOLONE. [Suspect]
     Active Substance: PREDNISOLONE
     Dosage: 18 MG, 1D
     Route: 048
     Dates: start: 20181014, end: 20181019
  29. PREDNISOLONE. [Suspect]
     Active Substance: PREDNISOLONE
     Dosage: 22.5 MG, 1D
     Route: 048
     Dates: start: 20180622, end: 20180816
  30. PREDNISOLONE. [Suspect]
     Active Substance: PREDNISOLONE
     Dosage: 23 MG, 1D
     Route: 048
     Dates: start: 20180525, end: 20180621
  31. FUNGUARD [Suspect]
     Active Substance: MICAFUNGIN SODIUM
     Indication: SYSTEMIC MYCOSIS
     Dosage: 150 MG, 1D
     Route: 065
     Dates: start: 20181005
  32. FUNGUARD [Suspect]
     Active Substance: MICAFUNGIN SODIUM
     Indication: CHROMOBLASTOMYCOSIS
     Dosage: 200 MG, 1D
     Route: 065
     Dates: start: 20181013
  33. BASEN OD TABLETS [Concomitant]
     Dosage: UNK
  34. BELIMUMAB [Suspect]
     Active Substance: BELIMUMAB
     Dosage: UNK
     Route: 041
     Dates: start: 20190308
  35. PREDNISOLONE. [Suspect]
     Active Substance: PREDNISOLONE
     Dosage: 16 MG, 1D
     Route: 048
     Dates: start: 20181027, end: 20181102
  36. PREDNISOLONE. [Suspect]
     Active Substance: PREDNISOLONE
     Dosage: 22 MG, 1D
     Route: 048
     Dates: start: 20181001, end: 20181004
  37. PREDNISOLONE. [Suspect]
     Active Substance: PREDNISOLONE
     Dosage: 26 MG, 1D
     Route: 048
     Dates: start: 20180316, end: 20180329
  38. LAMISIL [Suspect]
     Active Substance: TERBINAFINE HYDROCHLORIDE
     Indication: SYSTEMIC MYCOSIS
     Dosage: 125 MG, 1D
     Route: 065
     Dates: start: 20180927
  39. PREDNISOLONE. [Suspect]
     Active Substance: PREDNISOLONE
     Dosage: 20 MG, 1D
     Route: 048
     Dates: start: 20181008, end: 20181010
  40. AMBISOME [Suspect]
     Active Substance: AMPHOTERICIN B
     Indication: SYSTEMIC MYCOSIS
     Dosage: 150 MG, 1D
     Route: 065
     Dates: start: 20181020, end: 20181106
  41. PLAQUENIL TABLETS (HYDROXYCHLOROQUINE SULFATE) [Concomitant]
     Indication: SYSTEMIC LUPUS ERYTHEMATOSUS
     Dosage: UNK
  42. LENDORMIN D TABLET [Concomitant]
     Dosage: UNK

REACTIONS (7)
  - Chromoblastomycosis [Not Recovered/Not Resolved]
  - Upper respiratory tract inflammation [Recovering/Resolving]
  - Off label use [Unknown]
  - Upper respiratory tract inflammation [Recovering/Resolving]
  - Liver disorder [Recovered/Resolved]
  - Systemic mycosis [Not Recovered/Not Resolved]
  - Inappropriate schedule of product administration [Unknown]

NARRATIVE: CASE EVENT DATE: 20180202
